FAERS Safety Report 9409848 (Version 1)
Quarter: 2013Q3

REPORT INFORMATION
  Report Type: Spontaneous
  Country: US (occurrence: US)
  Receive Date: 20130719
  Receipt Date: 20130719
  Transmission Date: 20140515
  Serious: Yes (Other)
  Sender: FDA-Public Use
  Company Number: US-PFIZER INC-2013210977

PATIENT
  Age: 71 Year
  Sex: Male
  Weight: 73 kg

DRUGS (4)
  1. ZOLOFT [Suspect]
     Indication: DEPRESSION
     Dosage: 50 MG, 1X/DAY
     Route: 048
     Dates: start: 1995
  2. ZOLOFT [Suspect]
     Indication: ANXIETY
     Dosage: 100 MG, 1X/DAY
     Route: 048
  3. ZOLOFT [Suspect]
     Dosage: 150 MG, 1X/DAY
     Route: 048
  4. PROTONIX [Concomitant]
     Dosage: 40 MG, UNK

REACTIONS (4)
  - Parkinson^s disease [Unknown]
  - Weight fluctuation [Unknown]
  - Drug ineffective [Unknown]
  - Irritability [Unknown]
